FAERS Safety Report 21185361 (Version 5)
Quarter: 2022Q4

REPORT INFORMATION
  Report Type: Report from Study
  Country: BE (occurrence: BE)
  Receive Date: 20220808
  Receipt Date: 20221028
  Transmission Date: 20230112
  Serious: Yes (Hospitalization, Other)
  Sender: FDA-Public Use
  Company Number: BE-KOREA IPSEN Pharma-2022-22084

PATIENT

DRUGS (10)
  1. CABOZANTINIB [Suspect]
     Active Substance: CABOZANTINIB
     Indication: Renal cell carcinoma
     Dosage: 20 MG, QD
     Route: 048
     Dates: start: 20220408, end: 20220801
  2. LORMETAZEPAM [Concomitant]
     Active Substance: LORMETAZEPAM
     Indication: Insomnia
     Dosage: 1MG PER OS 1/DAY (ONGOING)
     Route: 048
     Dates: start: 202202
  3. GLYCOPYRROLATE [Concomitant]
     Active Substance: GLYCOPYRROLATE
     Indication: Chronic obstructive pulmonary disease
     Dosage: 44 MG AEROSOL 1/DAY
     Route: 048
     Dates: start: 20210609
  4. TRAMADOL HYDROCHLORIDE [Concomitant]
     Active Substance: TRAMADOL HYDROCHLORIDE
     Indication: Pain
     Dosage: 100 MG PER OS 2/DAY
     Route: 048
     Dates: start: 20220328
  5. EXFORGE [Concomitant]
     Active Substance: AMLODIPINE BESYLATE\VALSARTAN
     Indication: Hypertension
     Dosage: 10/160/25 MG PER OS 1/DAY (ONGOING)
     Route: 048
     Dates: start: 20210607
  6. EXFORGE [Concomitant]
     Active Substance: AMLODIPINE BESYLATE\VALSARTAN
     Indication: Hypertension
  7. CORDARONE [Concomitant]
     Active Substance: AMIODARONE HYDROCHLORIDE
     Indication: Atrial fibrillation
     Dosage: 200 UG PER OS 1/2 PER DAY (ONGOING)
     Route: 048
     Dates: start: 20210407
  8. FUROSEMIDE [Concomitant]
     Active Substance: FUROSEMIDE
     Dosage: 40MG PER OS 1/2 PER DAY (ONGOING)
     Route: 048
     Dates: start: 20210730
  9. ELIQUIS [Concomitant]
     Active Substance: APIXABAN
     Indication: Prophylaxis
     Dosage: 2.5 MG PER OS 2/DAY
     Route: 048
  10. BISOPROLOL [Concomitant]
     Active Substance: BISOPROLOL
     Indication: Arrhythmia
     Dosage: 2.5 MG PER OS 1/2 PER DAY 2.5MG PER OS 1/2 PER DAY (BEFORE 2015-ONGOING)
     Route: 048

REACTIONS (4)
  - Metabolic acidosis [Recovered/Resolved]
  - Acute kidney injury [Recovered/Resolved]
  - Dehydration [Recovered/Resolved]
  - Diarrhoea [Recovered/Resolved]

NARRATIVE: CASE EVENT DATE: 20220722
